FAERS Safety Report 14794248 (Version 1)
Quarter: 2018Q2

REPORT INFORMATION
  Report Type: Spontaneous
  Country: ES (occurrence: ES)
  Receive Date: 20180423
  Receipt Date: 20180423
  Transmission Date: 20180711
  Serious: Yes (Other)
  Sender: FDA-Public Use
  Company Number: ES-TEVA-2018-ES-882530

PATIENT
  Sex: Female

DRUGS (1)
  1. ESCITALOPRAM [Suspect]
     Active Substance: ESCITALOPRAM OXALATE
     Indication: PRODUCT USED FOR UNKNOWN INDICATION
     Route: 065

REACTIONS (14)
  - Depression [Unknown]
  - Panic attack [Unknown]
  - Agitation [Unknown]
  - Dizziness [Unknown]
  - Crying [Unknown]
  - Dyspnoea [Unknown]
  - Diarrhoea [Unknown]
  - Anxiety [Unknown]
  - Nausea [Unknown]
  - Aggression [Unknown]
  - Derealisation [Unknown]
  - Gastric ulcer [Unknown]
  - Insomnia [Unknown]
  - Vertigo [Unknown]
